FAERS Safety Report 11927874 (Version 1)
Quarter: 2016Q1

REPORT INFORMATION
  Report Type: Spontaneous
  Country: CN (occurrence: CN)
  Receive Date: 20160119
  Receipt Date: 20160119
  Transmission Date: 20160526
  Serious: Yes (Other)
  Sender: FDA-Public Use
  Company Number: CN-PFIZER INC-2016025042

PATIENT
  Age: 49 Year
  Sex: Female
  Weight: 52 kg

DRUGS (2)
  1. GLUCOSAMINE HYDROCHLORIDE [Concomitant]
     Active Substance: GLUCOSAMINE HYDROCHLORIDE
     Indication: ARTHRITIS
     Dosage: 750 MG, 2X/DAY
     Route: 048
     Dates: start: 20150721, end: 20150721
  2. CELEBREX [Suspect]
     Active Substance: CELECOXIB
     Indication: INFECTION
     Dosage: 0.2 G, 2X/DAY
     Route: 048
     Dates: start: 20150721, end: 20150721

REACTIONS (5)
  - Abdominal discomfort [Recovered/Resolved]
  - Urinary incontinence [Recovered/Resolved]
  - Hypoaesthesia [Recovered/Resolved]
  - Dizziness [Recovered/Resolved]
  - Vomiting [Recovered/Resolved]

NARRATIVE: CASE EVENT DATE: 20150721
